FAERS Safety Report 9916064 (Version 1)
Quarter: 2014Q1

REPORT INFORMATION
  Report Type: Spontaneous
  Country: US (occurrence: None)
  Receive Date: 20140219
  Receipt Date: 20140219
  Transmission Date: 20141002
  Serious: Yes (Death, Hospitalization)
  Sender: FDA-Public Use
  Company Number: UTC-044467

PATIENT
  Age: 74 Year
  Sex: Male

DRUGS (2)
  1. TYVASO (6 MICROGRAM, AEROSOL FOR INHALATION) (TREPROSTINIL SODIUM) [Suspect]
     Indication: PULMONARY ARTERIAL HYPERTENSION
     Route: 055
     Dates: start: 20140120, end: 201401
  2. ADCIRCA (TADALAFIL) (UNKNOWN) [Concomitant]

REACTIONS (4)
  - Syncope [None]
  - Dyspnoea [None]
  - Asthenia [None]
  - Diarrhoea [None]
